FAERS Safety Report 9338083 (Version 2)
Quarter: 2013Q3

REPORT INFORMATION
  Report Type: Spontaneous
  Country: IT (occurrence: IT)
  Receive Date: 20130610
  Receipt Date: 20130724
  Transmission Date: 20140515
  Serious: Yes (Hospitalization)
  Sender: FDA-Public Use
  Company Number: IT-ROCHE-1234328

PATIENT
  Age: 80 Year
  Sex: Male

DRUGS (9)
  1. MABTHERA [Suspect]
     Indication: NON-HODGKIN^S LYMPHOMA
     Route: 042
     Dates: start: 20110930, end: 20120424
  2. VINCRISTINA [Suspect]
     Indication: NON-HODGKIN^S LYMPHOMA
     Dosage: 1, 4 MG
     Route: 042
     Dates: start: 20111001, end: 20120125
  3. FARMORUBICIN [Suspect]
     Indication: NON-HODGKIN^S LYMPHOMA
     Route: 042
     Dates: start: 20111001, end: 20120125
  4. ENDOXAN BAXTER [Suspect]
     Indication: NON-HODGKIN^S LYMPHOMA
     Route: 042
     Dates: start: 20111001, end: 20120125
  5. RANITIDINA [Concomitant]
     Route: 065
     Dates: start: 20120124, end: 20120124
  6. TRIMETON (ITALY) [Concomitant]
     Route: 065
     Dates: start: 20120124, end: 20120124
  7. URBASON SOLUBILE [Concomitant]
     Route: 065
     Dates: start: 20120124, end: 20120124
  8. TACHIPIRINA [Concomitant]
     Route: 065
     Dates: start: 20120124, end: 20120124
  9. PREDNISONE [Concomitant]
     Route: 065
     Dates: start: 20120126, end: 20120129

REACTIONS (5)
  - Diarrhoea [Recovered/Resolved]
  - Hyperpyrexia [Recovered/Resolved]
  - Pancytopenia [Recovered/Resolved]
  - Vomiting [Recovered/Resolved]
  - Sepsis [Recovered/Resolved]
